FAERS Safety Report 7681635-X (Version None)
Quarter: 2011Q3

REPORT INFORMATION
  Report Type: 
  Country: None (occurrence: None)
  Receive Date: 20110812
  Receipt Date: 20110805
  Transmission Date: 20111222
  Serious: Yes (Life-Threatening)
  Sender: FDA-Public Use
  Company Number: PHHY2010JP80606

PATIENT
  Age: 68 Year
  Sex: Male

DRUGS (3)
  1. NITROPEN [Concomitant]
     Dosage: 1 DF, UNK
     Route: 060
     Dates: start: 20100307, end: 20100307
  2. LOPRESSOR [Suspect]
     Indication: COMPUTERISED TOMOGRAM
     Route: 048
  3. IOPAMIDOL [Suspect]
     Dosage: 80 ML, DAILY
     Route: 042
     Dates: start: 20100307, end: 20100307

REACTIONS (2)
  - ANAPHYLACTIC SHOCK [None]
  - CARDIO-RESPIRATORY ARREST [None]
